FAERS Safety Report 19293014 (Version 1)
Quarter: 2021Q2

REPORT INFORMATION
  Report Type: Spontaneous
  Country: US (occurrence: US)
  Receive Date: 20210522
  Receipt Date: 20210522
  Transmission Date: 20210717
  Serious: Yes (Hospitalization)
  Sender: FDA-Public Use
  Company Number: None

PATIENT
  Age: 60 Year
  Sex: Female
  Weight: 110.25 kg

DRUGS (8)
  1. ALLEGRA [Concomitant]
     Active Substance: FEXOFENADINE HYDROCHLORIDE
  2. PROAIR HFA [Concomitant]
     Active Substance: ALBUTEROL SULFATE
  3. ADVAIR HFA [Concomitant]
     Active Substance: FLUTICASONE PROPIONATE\SALMETEROL XINAFOATE
  4. THEO [Concomitant]
     Active Substance: THEOPHYLLINE ANHYDROUS
  5. LEVOFLOXACIN 500MG [Suspect]
     Active Substance: LEVOFLOXACIN
     Indication: BRONCHITIS
     Dosage: QUANTITY:1 TABLET(S);?
     Route: 048
     Dates: start: 20210430, end: 20210508
  6. DUPIXENT [Concomitant]
     Active Substance: DUPILUMAB
  7. LUNESTA [Concomitant]
     Active Substance: ESZOPICLONE
  8. PULMICORT TURBUHALER [Concomitant]
     Active Substance: BUDESONIDE

REACTIONS (7)
  - Myalgia [None]
  - Dysstasia [None]
  - Asthenia [None]
  - Gait inability [None]
  - Anger [None]
  - Frustration tolerance decreased [None]
  - Muscle spasms [None]

NARRATIVE: CASE EVENT DATE: 20210509
